FAERS Safety Report 11178182 (Version 2)
Quarter: 2015Q3

REPORT INFORMATION
  Report Type: Spontaneous
  Country: US (occurrence: US)
  Receive Date: 20150610
  Receipt Date: 20150818
  Transmission Date: 20151125
  Serious: No
  Sender: FDA-Public Use
  Company Number: US-PFIZER INC-2015190539

PATIENT
  Age: 10 Year
  Sex: Female
  Weight: 36.28 kg

DRUGS (1)
  1. CLINDAMYCIN PHOSPHATE. [Suspect]
     Active Substance: CLINDAMYCIN PHOSPHATE
     Indication: TOOTH INFECTION
     Dosage: 75 MG, 2X/DAY
     Dates: start: 20150515

REACTIONS (4)
  - Retching [Unknown]
  - Vomiting [Unknown]
  - Product taste abnormal [Unknown]
  - Product odour abnormal [Unknown]
